FAERS Safety Report 23750658 (Version 2)
Quarter: 2024Q2

REPORT INFORMATION
  Report Type: Report from Study
  Country: US (occurrence: US)
  Receive Date: 20240417
  Receipt Date: 20240429
  Transmission Date: 20240716
  Serious: No
  Sender: FDA-Public Use
  Company Number: US-PARATEK PHARMACEUTICALS, INC.-2024PTK00281

PATIENT
  Age: 76 Year
  Sex: Male

DRUGS (3)
  1. NUZYRA [Suspect]
     Active Substance: OMADACYCLINE
     Indication: Bacterial infection
     Dosage: 300 MG, 1X/DAY
     Route: 048
     Dates: start: 20240206
  2. NUZYRA [Suspect]
     Active Substance: OMADACYCLINE
     Indication: Sensory loss
  3. NUZYRA [Suspect]
     Active Substance: OMADACYCLINE
     Indication: Incontinence

REACTIONS (1)
  - No adverse event [Not Recovered/Not Resolved]
